FAERS Safety Report 18620295 (Version 2)
Quarter: 2021Q1

REPORT INFORMATION
  Report Type: Spontaneous
  Country: US (occurrence: US)
  Receive Date: 20201215
  Receipt Date: 20210206
  Transmission Date: 20210419
  Serious: Yes (Other)
  Sender: FDA-Public Use
  Company Number: US-TEVA-2020-US-1858071

PATIENT
  Age: 31 Year
  Sex: Male

DRUGS (7)
  1. BACLOFEN. [Suspect]
     Active Substance: BACLOFEN
     Indication: AMYOTROPHIC LATERAL SCLEROSIS
     Route: 048
  2. DIAZEPAM. [Suspect]
     Active Substance: DIAZEPAM
     Indication: AMYOTROPHIC LATERAL SCLEROSIS
     Route: 065
  3. CLONAZEPAM. [Suspect]
     Active Substance: CLONAZEPAM
     Indication: AMYOTROPHIC LATERAL SCLEROSIS
     Route: 065
  4. LORAZEPAM. [Suspect]
     Active Substance: LORAZEPAM
     Indication: AMYOTROPHIC LATERAL SCLEROSIS
     Route: 065
  5. TIZANIDINE. [Suspect]
     Active Substance: TIZANIDINE
     Indication: AMYOTROPHIC LATERAL SCLEROSIS
     Route: 065
  6. CANNABIS [Suspect]
     Active Substance: CANNABIS SATIVA SUBSP. INDICA TOP
     Indication: AMYOTROPHIC LATERAL SCLEROSIS
     Route: 065
  7. CANNABIDIOL/TETRAHYDROCANNABINOL [Concomitant]
     Indication: AMYOTROPHIC LATERAL SCLEROSIS
     Route: 065

REACTIONS (2)
  - Treatment failure [Unknown]
  - Cannabinoid hyperemesis syndrome [Recovered/Resolved]
